FAERS Safety Report 7346251-8 (Version None)
Quarter: 2011Q1

REPORT INFORMATION
  Report Type: 
  Country: None (occurrence: None)
  Receive Date: 20110311
  Receipt Date: 20110308
  Transmission Date: 20110831
  Serious: No
  Sender: FDA-Public Use
  Company Number: US-PFIZER INC-2007028626

PATIENT
  Age: 61 Year
  Sex: Female
  Weight: 74.84 kg

DRUGS (5)
  1. CHANTIX [Suspect]
     Indication: SMOKING CESSATION THERAPY
     Dates: start: 20070101
  2. LITHIUM [Concomitant]
  3. ACETYLSALICYLIC ACID [Concomitant]
  4. CHANTIX [Suspect]
     Dosage: 1 MG, 2X/DAY
     Route: 048
  5. THYROID [Concomitant]

REACTIONS (4)
  - RETCHING [None]
  - VOMITING [None]
  - NAUSEA [None]
  - INSOMNIA [None]
